FAERS Safety Report 6873706-2 (Version None)
Quarter: 2010Q3

REPORT INFORMATION
  Report Type: 
  Country: None (occurrence: None)
  Receive Date: 20100723
  Receipt Date: 20090217
  Transmission Date: 20110219
  Serious: No
  Sender: FDA-Public Use
  Company Number: US-PFIZER INC-2009174000

PATIENT
  Sex: Female

DRUGS (1)
  1. CHANTIX [Suspect]
     Dosage: UNK
     Dates: start: 20090201

REACTIONS (6)
  - DEPRESSED MOOD [None]
  - DIZZINESS [None]
  - EAR DISCOMFORT [None]
  - IRRITABILITY [None]
  - SELF ESTEEM DECREASED [None]
  - TINNITUS [None]
